FAERS Safety Report 4368486-9 (Version None)
Quarter: 2004Q2

REPORT INFORMATION
  Report Type: 
  Country: None (occurrence: None)
  Receive Date: 20040602
  Receipt Date: 20031031
  Transmission Date: 20050107
  Serious: No
  Sender: FDA-Public Use
  Company Number: US-GLAXOSMITHKLINE-A0432433A

PATIENT
  Age: 9 Year
  Sex: Male
  Weight: 33.6 kg

DRUGS (1)
  1. AUGMENTIN ES-600 [Suspect]
     Indication: ILL-DEFINED DISORDER
     Dosage: 1.5TSP TWICE PER DAY
     Route: 048
     Dates: start: 20031022, end: 20031027

REACTIONS (3)
  - DRUG INEFFECTIVE [None]
  - EAR INFECTION [None]
  - PHARMACEUTICAL PRODUCT COMPLAINT [None]
